FAERS Safety Report 10149362 (Version 1)
Quarter: 2014Q2

REPORT INFORMATION
  Report Type: Spontaneous
  Country: US (occurrence: US)
  Receive Date: 20140502
  Receipt Date: 20140502
  Transmission Date: 20141212
  Serious: No
  Sender: FDA-Public Use
  Company Number: US-B.I. PHARMACEUTICALS,INC./RIDGEFIELD-2014-BI-18638BP

PATIENT
  Age: 69 Year
  Sex: Male
  Weight: 79 kg

DRUGS (6)
  1. FLOMAX CAPSULES [Suspect]
     Indication: PROSTATECTOMY
     Dosage: 0.4 MG
     Route: 048
     Dates: start: 20140420, end: 20140423
  2. COZAAR [Concomitant]
     Indication: HYPERTENSION
     Dosage: 100 MG
     Route: 048
  3. TOPROL [Concomitant]
     Indication: HYPERTENSION
     Dosage: 100 MG
     Route: 048
  4. AMLODIPINE [Concomitant]
     Indication: HYPERTENSION
     Dosage: 10 MG
     Route: 048
  5. HCTZ [Concomitant]
     Indication: HYPERTENSION
     Dosage: DESE PER APPLICATION: 37.5; DAILY DOSE: 37.5
     Route: 048
  6. LIPITOR [Concomitant]
     Indication: BLOOD CHOLESTEROL INCREASED
     Dosage: 20 MG
     Route: 048

REACTIONS (2)
  - Orthostatic hypertension [Recovered/Resolved]
  - Off label use [Unknown]
